FAERS Safety Report 9920919 (Version 1)
Quarter: 2014Q1

REPORT INFORMATION
  Report Type: Spontaneous
  Country: US (occurrence: US)
  Receive Date: 20140225
  Receipt Date: 20140225
  Transmission Date: 20141002
  Serious: Yes (Hospitalization)
  Sender: FDA-Public Use
  Company Number: US-BIOGENIDEC-2014BI017073

PATIENT
  Age: 57 Year
  Sex: Female

DRUGS (1)
  1. TYSABRI [Suspect]
     Indication: MULTIPLE SCLEROSIS
     Route: 042
     Dates: start: 20120605

REACTIONS (5)
  - Fall [Recovered/Resolved]
  - Renal neoplasm [Not Recovered/Not Resolved]
  - Blood urine present [Not Recovered/Not Resolved]
  - Weight bearing difficulty [Unknown]
  - Arthropathy [Not Recovered/Not Resolved]
